FAERS Safety Report 9520684 (Version 1)
Quarter: 2013Q3

REPORT INFORMATION
  Report Type: Spontaneous
  Country: US (occurrence: US)
  Receive Date: 20130913
  Receipt Date: 20130913
  Transmission Date: 20140515
  Serious: No
  Sender: FDA-Public Use
  Company Number: US-009507513-1309USA003327

PATIENT
  Age: 34 Year
  Sex: Female
  Weight: 155 kg

DRUGS (1)
  1. NEXPLANON [Suspect]
     Indication: CONTRACEPTION
     Dosage: 1 DF, INSERT LEFT ARM
     Route: 059
     Dates: start: 20121029

REACTIONS (3)
  - Menorrhagia [Unknown]
  - Dizziness [Unknown]
  - Nausea [Unknown]
